FAERS Safety Report 6880058-0 (Version None)
Quarter: 2010Q3

REPORT INFORMATION
  Report Type: 
  Country: None (occurrence: None)
  Receive Date: 20100727
  Receipt Date: 20100106
  Transmission Date: 20110219
  Serious: No
  Sender: FDA-Public Use
  Company Number: US-ABBOTT-10P-163-0618520-00

PATIENT
  Sex: Female
  Weight: 68.1 kg

DRUGS (4)
  1. SYNTHROID [Suspect]
     Indication: BASEDOW'S DISEASE
     Route: 048
     Dates: start: 19760101, end: 20050101
  2. SYNTHROID [Suspect]
  3. SYNTHROID [Suspect]
     Route: 048
  4. SYNTHROID [Suspect]
     Dosage: 2.5 TAB DAILY
     Route: 048

REACTIONS (4)
  - CHEST PAIN [None]
  - INCORRECT DOSE ADMINISTERED [None]
  - NERVOUSNESS [None]
  - NIGHTMARE [None]
